FAERS Safety Report 24990277 (Version 1)
Quarter: 2025Q1

REPORT INFORMATION
  Report Type: Spontaneous
  Country: US (occurrence: None)
  Receive Date: 20250219
  Receipt Date: 20250219
  Transmission Date: 20250409
  Serious: Yes (unspecified)
  Sender: FDA-CTU
  Company Number: None

PATIENT
  Age: 66 Year
  Sex: Female
  Weight: 76.9 kg

DRUGS (1)
  1. LIVDELZI [Suspect]
     Active Substance: SELADELPAR LYSINE
     Dosage: FREQUENCY : DAILY;?
     Route: 048
     Dates: start: 20241118, end: 20241122

REACTIONS (2)
  - Blood pressure increased [None]
  - Therapy cessation [None]

NARRATIVE: CASE EVENT DATE: 20241118
